FAERS Safety Report 20960884 (Version 2)
Quarter: 2022Q2

REPORT INFORMATION
  Report Type: Report from Study
  Country: US (occurrence: US)
  Receive Date: 20220615
  Receipt Date: 20220615
  Transmission Date: 20220721
  Serious: Yes (Other)
  Sender: FDA-Public Use
  Company Number: US-JNJFOC-20220534043

PATIENT
  Age: 57 Year
  Sex: Female

DRUGS (1)
  1. SIMPONI [Suspect]
     Active Substance: GOLIMUMAB
     Indication: Rheumatoid arthritis
     Route: 058
     Dates: start: 20220421

REACTIONS (9)
  - Rheumatoid arthritis [Not Recovered/Not Resolved]
  - Cough [Not Recovered/Not Resolved]
  - Ear pain [Not Recovered/Not Resolved]
  - Drug ineffective [Not Recovered/Not Resolved]
  - Nausea [Not Recovered/Not Resolved]
  - Headache [Not Recovered/Not Resolved]
  - Acute sinusitis [Not Recovered/Not Resolved]
  - Upper respiratory tract infection [Unknown]
  - Infection [Unknown]

NARRATIVE: CASE EVENT DATE: 20220101
